FAERS Safety Report 23553686 (Version 3)
Quarter: 2024Q1

REPORT INFORMATION
  Report Type: Spontaneous
  Country: JP (occurrence: JP)
  Receive Date: 20240222
  Receipt Date: 20240318
  Transmission Date: 20240410
  Serious: Yes (Hospitalization)
  Sender: FDA-Public Use
  Company Number: JP-Eisai-202314138_DVG_P_1

PATIENT
  Sex: Female

DRUGS (4)
  1. DAYVIGO [Suspect]
     Active Substance: LEMBOREXANT
     Indication: Insomnia
     Route: 048
     Dates: start: 20231228, end: 20240114
  2. MAGNESIUM OXIDE [Concomitant]
     Active Substance: MAGNESIUM OXIDE
     Indication: Constipation
     Dosage: INCREASE OR DECREASE ACCORDINGLY (FREQUENCY UNKNOWN).
     Route: 048
  3. CETOTIAMINE HYDROCHLORIDE [Concomitant]
     Active Substance: CETOTIAMINE HYDROCHLORIDE
     Indication: Wernicke^s encephalopathy
     Dosage: INCREASE OR DECREASE ACCORDINGLY (FREQUENCY UNKNOWN).
     Route: 048
  4. CETOTIAMINE HYDROCHLORIDE [Concomitant]
     Active Substance: CETOTIAMINE HYDROCHLORIDE
     Indication: Vitamin B1 deficiency

REACTIONS (1)
  - Bradycardia [Recovered/Resolved]
